FAERS Safety Report 6557324-1 (Version None)
Quarter: 2010Q1

REPORT INFORMATION
  Report Type: 
  Country: None (occurrence: None)
  Receive Date: 20100127
  Receipt Date: 20100127
  Transmission Date: 20100710
  Serious: No
  Sender: FDA-Public Use
  Company Number: None

PATIENT
  Age: 57 Year
  Sex: Female
  Weight: 111.1766 kg

DRUGS (2)
  1. PACLITAXEL [Suspect]
     Indication: BREAST CANCER
     Dosage: 368 MG IV DRIP
     Route: 041
     Dates: start: 20090521, end: 20090521
  2. NEULASTA [Suspect]
     Dosage: 6MG SQ
     Route: 058

REACTIONS (4)
  - COUGH [None]
  - DIZZINESS [None]
  - DYSPNOEA [None]
  - FATIGUE [None]
